FAERS Safety Report 19681039 (Version 1)
Quarter: 2021Q3

REPORT INFORMATION
  Report Type: Report from Study
  Country: GB (occurrence: GB)
  Receive Date: 20210810
  Receipt Date: 20210810
  Transmission Date: 20211014
  Serious: Yes (Life-Threatening, Hospitalization)
  Sender: FDA-Public Use
  Company Number: GB-SA-2021SA204194

PATIENT
  Age: 72 Year
  Sex: Female

DRUGS (20)
  1. DUPILUMAB [Suspect]
     Active Substance: DUPILUMAB
     Indication: ECZEMA
  2. BENDROFLUMETHIAZIDE [Suspect]
     Active Substance: BENDROFLUMETHIAZIDE
     Dosage: UNK
     Dates: start: 202105
  3. MUCOSOL [Concomitant]
     Active Substance: ACETYLCYSTEINE
     Dosage: UNK UNK, PRN
     Route: 048
  4. DUPILUMAB [Suspect]
     Active Substance: DUPILUMAB
     Indication: DERMATITIS ATOPIC
     Dosage: 300 MG, QOW
     Route: 058
     Dates: start: 20210325
  5. ATENOLOL. [Concomitant]
     Active Substance: ATENOLOL
     Dosage: 100 MG PO NOCTE
     Route: 048
  6. OMEPRAZOLE. [Concomitant]
     Active Substance: OMEPRAZOLE
     Dosage: 20 MG, QD
     Route: 048
  7. DUPILUMAB [Suspect]
     Active Substance: DUPILUMAB
     Indication: NEURODERMATITIS
  8. BETNOVATE [Concomitant]
     Active Substance: BETAMETHASONE
     Dosage: UNK UNK, PRN
     Route: 061
  9. CHOLECALCIFEROL [Concomitant]
     Active Substance: CHOLECALCIFEROL
     Dosage: 1 DF, BID
     Route: 048
  10. INSULIN [Concomitant]
     Active Substance: INSULIN NOS
     Indication: DIABETES MELLITUS
     Dosage: 40 UNITS OD
     Route: 058
  11. ROSUVASTATIN. [Concomitant]
     Active Substance: ROSUVASTATIN
     Dosage: 10 MG
     Route: 048
  12. PREDNISOLONE. [Concomitant]
     Active Substance: PREDNISOLONE
     Dosage: 10 MG, BID
     Route: 048
  13. BALNEUM [POLIDOCANOL;UREA] [Concomitant]
     Active Substance: POLIDOCANOL\UREA
     Dosage: UNK UNK, PRN
     Route: 061
  14. ALENDRONIC ACID [Concomitant]
     Active Substance: ALENDRONIC ACID
     Indication: OSTEOPOROSIS
     Dosage: DOSE OF 70 WITH FREQUENCY OW
     Route: 048
  15. ASPIRIN [ACETYLSALICYLIC ACID] [Concomitant]
     Active Substance: ASPIRIN
     Dosage: 75 MG, QD
     Route: 048
  16. MONUROL [Concomitant]
     Active Substance: FOSFOMYCIN TROMETHAMINE
     Dosage: UNK UNK, PRN
     Route: 048
  17. AMITRIPTYLINE [Concomitant]
     Active Substance: AMITRIPTYLINE
     Dosage: 20 MG PO NOCTE
     Route: 048
  18. CANDESARTAN. [Concomitant]
     Active Substance: CANDESARTAN
     Dosage: 30 MG
     Route: 048
  19. ONDANSETRON [Concomitant]
     Active Substance: ONDANSETRON
     Dosage: 8 MG, PRN
     Route: 048
  20. DERMOL 500 [Concomitant]
     Dosage: UNK UNK, QD
     Route: 061

REACTIONS (6)
  - Malaise [Unknown]
  - Hyponatraemia [Unknown]
  - Sciatica [Unknown]
  - Product use in unapproved indication [Unknown]
  - Blood sodium decreased [Unknown]
  - Cognitive disorder [Recovered/Resolved]

NARRATIVE: CASE EVENT DATE: 20210325
